FAERS Safety Report 18340461 (Version 1)
Quarter: 2020Q4

REPORT INFORMATION
  Report Type: Spontaneous
  Country: US (occurrence: US)
  Receive Date: 20201002
  Receipt Date: 20201002
  Transmission Date: 20210113
  Serious: No
  Sender: FDA-Public Use
  Company Number: US-PFIZER INC-2020366398

PATIENT
  Age: 81 Year
  Sex: Male

DRUGS (2)
  1. INSPRA [Suspect]
     Active Substance: EPLERENONE
     Dosage: 12.5 MG, 1X/DAY
     Route: 048
  2. INSPRA [Suspect]
     Active Substance: EPLERENONE
     Dosage: 12.5 MG, DAILY ((12.5 MG PO Q (EVERY) DAY))
     Route: 048

REACTIONS (2)
  - Off label use [Unknown]
  - Breast tenderness [Unknown]
